FAERS Safety Report 9486668 (Version 1)
Quarter: 2013Q3

REPORT INFORMATION
  Report Type: Spontaneous
  Country: US (occurrence: None)
  Receive Date: 20130827
  Receipt Date: 20130827
  Transmission Date: 20140515
  Serious: No
  Sender: FDA-Public Use
  Company Number: None

PATIENT
  Age: 41 None
  Sex: Female

DRUGS (9)
  1. LATUDA [Suspect]
     Indication: BIPOLAR DISORDER
     Dates: start: 201304, end: 201307
  2. CITIRIZINE 10 MG [Concomitant]
  3. NAPROXEN [Concomitant]
  4. LISINOPRIL [Concomitant]
  5. TOPAMAX [Concomitant]
  6. LIMITAL [Concomitant]
  7. LEXAPRO [Concomitant]
  8. RESTORIL [Concomitant]
  9. BENZTROPINE [Concomitant]

REACTIONS (6)
  - Local swelling [None]
  - Local swelling [None]
  - Arthralgia [None]
  - Pain in extremity [None]
  - Pain in extremity [None]
  - Musculoskeletal pain [None]
